FAERS Safety Report 20130045 (Version 2)
Quarter: 2022Q1

REPORT INFORMATION
  Report Type: Spontaneous
  Country: US (occurrence: US)
  Receive Date: 20211130
  Receipt Date: 20220104
  Transmission Date: 20220424
  Serious: Yes (Other)
  Sender: FDA-Public Use
  Company Number: US-BROWN + BURK(UK) LIMITED-ML2021-03597

PATIENT
  Age: 18 Year
  Weight: 58.967 kg

DRUGS (2)
  1. CLOBAZAM [Suspect]
     Active Substance: CLOBAZAM
     Indication: Seizure
     Dosage: ONE TABLET EVERY NIGHT
     Dates: start: 202106
  2. CLOBAZAM [Suspect]
     Active Substance: CLOBAZAM
     Dosage: 2.5 MG DUE TO THE PILL CUTTER

REACTIONS (2)
  - Seizure [Unknown]
  - Drug ineffective [Unknown]
